FAERS Safety Report 4556365-3 (Version None)
Quarter: 2005Q1

REPORT INFORMATION
  Report Type: 
  Country: None (occurrence: None)
  Receive Date: 20050103
  Receipt Date: 20040817
  Transmission Date: 20050727
  Serious: Yes (Other)
  Sender: FDA-Public Use
  Company Number: 2004UW17416

PATIENT

DRUGS (1)
  1. CRESTOR [Suspect]

REACTIONS (1)
  - VERY LOW DENSITY LIPOPROTEIN DECREASED [None]
